FAERS Safety Report 21076053 (Version 1)
Quarter: 2022Q3

REPORT INFORMATION
  Report Type: Spontaneous
  Country: UA (occurrence: None)
  Receive Date: 20220713
  Receipt Date: 20220713
  Transmission Date: 20221026
  Serious: Yes (Other)
  Sender: FDA-Public Use
  Company Number: 2022A249957

PATIENT

DRUGS (1)
  1. BRILINTA [Suspect]
     Active Substance: TICAGRELOR
     Indication: Acute coronary syndrome
     Route: 048

REACTIONS (3)
  - Arrhythmia supraventricular [Unknown]
  - Atrial fibrillation [Unknown]
  - Arrhythmia [Unknown]
